FAERS Safety Report 7267065-3 (Version None)
Quarter: 2011Q1

REPORT INFORMATION
  Report Type: 
  Country: None (occurrence: None)
  Receive Date: 20110201
  Receipt Date: 20110120
  Transmission Date: 20110831
  Serious: Yes (Hospitalization)
  Sender: FDA-Public Use
  Company Number: PHHY2011FR04839

PATIENT
  Sex: Male

DRUGS (3)
  1. PREVISCAN [Concomitant]
  2. TEGRETOL [Suspect]
     Dosage: 200 MG, QD
     Dates: start: 20101213, end: 20101223
  3. DIGOXIN [Concomitant]

REACTIONS (10)
  - GAMMA-GLUTAMYLTRANSFERASE INCREASED [None]
  - INFLAMMATION [None]
  - LUNG DISORDER [None]
  - ENANTHEMA [None]
  - RASH GENERALISED [None]
  - PYREXIA [None]
  - SCAR [None]
  - DERMATITIS [None]
  - DERMATITIS BULLOUS [None]
  - LIVER FUNCTION TEST ABNORMAL [None]
